FAERS Safety Report 21987750 (Version 2)
Quarter: 2023Q2

REPORT INFORMATION
  Report Type: Spontaneous
  Country: GB (occurrence: GB)
  Receive Date: 20230214
  Receipt Date: 20230407
  Transmission Date: 20230722
  Serious: No
  Sender: FDA-Public Use
  Company Number: GB-BRISTOL-MYERS SQUIBB COMPANY-2023-021330

PATIENT
  Age: 75 Year
  Sex: Male
  Weight: 92.08 kg

DRUGS (2)
  1. ELIQUIS [Suspect]
     Active Substance: APIXABAN
     Indication: Cerebrovascular accident prophylaxis
     Dosage: DOSE : 5MG;     FREQ : TWICE A DAY
     Route: 048
     Dates: start: 2021
  2. PRAVASTATIN [Concomitant]
     Active Substance: PRAVASTATIN
     Indication: Cerebrovascular accident prophylaxis

REACTIONS (1)
  - No adverse event [Unknown]
